FAERS Safety Report 25035251 (Version 5)
Quarter: 2025Q3

REPORT INFORMATION
  Report Type: Spontaneous
  Country: US (occurrence: US)
  Receive Date: 20250304
  Receipt Date: 20250702
  Transmission Date: 20251021
  Serious: Yes (Death, Hospitalization)
  Sender: ADAPTIMMUNE
  Company Number: US-ADAPTCSP-2025-AER-00005

PATIENT
  Age: 22 Year
  Sex: Male

DRUGS (4)
  1. TECELRA [Suspect]
     Active Substance: AFAMITRESGENE AUTOLEUCEL
     Indication: Synovial sarcoma metastatic
     Route: 042
     Dates: start: 20250210, end: 20250210
  2. AIM [Concomitant]
     Indication: Synovial sarcoma metastatic
  3. gemcitabine/Taxotere [Concomitant]
     Indication: Synovial sarcoma metastatic
  4. PAZOPANIB [Concomitant]
     Active Substance: PAZOPANIB
     Indication: Synovial sarcoma

REACTIONS (1)
  - Acute myeloid leukaemia [Fatal]

NARRATIVE: CASE EVENT DATE: 20250219
